FAERS Safety Report 10064546 (Version 1)
Quarter: 2014Q2

REPORT INFORMATION
  Report Type: Spontaneous
  Country: GB (occurrence: None)
  Receive Date: 20140404
  Receipt Date: 20140404
  Transmission Date: 20141212
  Serious: Yes (Other)
  Sender: FDA-Public Use
  Company Number: AUR-APL-2014-04102

PATIENT
  Age: 45 Year
  Sex: Female
  Weight: 96.61 kg

DRUGS (8)
  1. MIRTAZAPINE (MIRTAZAPINE) [Suspect]
     Indication: ANXIETY
     Route: 048
     Dates: start: 20140226
  2. MIRTAZAPINE (MIRTAZAPINE) [Suspect]
     Indication: BIPOLAR DISORDER
     Route: 048
     Dates: start: 20140226
  3. MIRTAZAPINE (MIRTAZAPINE) [Suspect]
     Indication: BORDERLINE PERSONALITY DISORDER
     Route: 048
     Dates: start: 20140226
  4. MIRTAZAPINE (MIRTAZAPINE) [Suspect]
     Indication: DEPRESSION
     Route: 048
     Dates: start: 20140226
  5. DIAZEPAM [Concomitant]
  6. LEVOTHYROXINE [Concomitant]
  7. OMEPRAZOLE [Concomitant]
  8. SERTRALINE [Concomitant]

REACTIONS (4)
  - Anger [None]
  - Anger [None]
  - Disturbance in attention [None]
  - Weight increased [None]
